FAERS Safety Report 12780584 (Version 5)
Quarter: 2017Q1

REPORT INFORMATION
  Report Type: Spontaneous
  Country: US (occurrence: US)
  Receive Date: 20160926
  Receipt Date: 20170215
  Transmission Date: 20170428
  Serious: Yes (Other)
  Sender: FDA-Public Use
  Company Number: US-PFIZER INC-2016440704

PATIENT
  Age: 60 Year
  Sex: Female

DRUGS (2)
  1. AMINOPHYLLINE. [Suspect]
     Active Substance: AMINOPHYLLINE
     Indication: DYSPNOEA
     Dosage: 125 MG, UNK
     Route: 042
     Dates: start: 20160824, end: 20160824
  2. LEXISCAN [Suspect]
     Active Substance: REGADENOSON
     Indication: CARDIAC STRESS TEST
     Dosage: UNK
     Dates: start: 20160824, end: 20160824

REACTIONS (3)
  - Malaise [Recovering/Resolving]
  - Dyspnoea [Recovering/Resolving]
  - Psychogenic seizure [Recovered/Resolved]

NARRATIVE: CASE EVENT DATE: 20160824
